FAERS Safety Report 6127037-9 (Version None)
Quarter: 2009Q1

REPORT INFORMATION
  Report Type: 
  Country: None (occurrence: None)
  Receive Date: 20090320
  Receipt Date: 20090316
  Transmission Date: 20090719
  Serious: No
  Sender: FDA-Public Use
  Company Number: US-B.I. PHARMACEUTICALS,INC./RIDGEFIELD-2007-BP-21105BP

PATIENT
  Sex: Female

DRUGS (16)
  1. SPIRIVA [Suspect]
     Indication: ASTHMA
     Dosage: 18MCG
     Route: 055
     Dates: start: 20040101
  2. QVAR 40 [Concomitant]
     Indication: ASTHMA
  3. ISOPTIN [Concomitant]
     Indication: MITRAL VALVE PROLAPSE
  4. PRILOSEC [Concomitant]
  5. MEVACOR [Concomitant]
     Indication: BLOOD CHOLESTEROL
  6. SYNTHROID [Concomitant]
     Indication: HYPOTHYROIDISM
  7. TRIAMTERENE [Concomitant]
  8. ASPIRIN [Concomitant]
  9. ALBUTEROL [Concomitant]
     Indication: ASTHMA
  10. POTASSIUM CHLORIDE [Concomitant]
  11. VERAPAMIL [Concomitant]
     Indication: HYPERTENSION
  12. PRAVASTATIN [Concomitant]
     Indication: BLOOD CHOLESTEROL INCREASED
  13. DIURETIC [Concomitant]
     Indication: FLUID RETENTION
  14. AMILORIDE HYDROCHLORIDE [Concomitant]
     Indication: DIURETIC THERAPY
  15. OMEPRAZOLE [Concomitant]
     Indication: FLATULENCE
  16. PROAIR HFA [Concomitant]
     Indication: ASTHMA

REACTIONS (13)
  - BRONCHIAL SECRETION RETENTION [None]
  - BRONCHITIS [None]
  - CANDIDIASIS [None]
  - DRUG PRESCRIBING ERROR [None]
  - DRY EYE [None]
  - DRY MOUTH [None]
  - DYSPNOEA [None]
  - LOWER RESPIRATORY TRACT INFECTION [None]
  - NASAL DRYNESS [None]
  - NASOPHARYNGITIS [None]
  - PANIC REACTION [None]
  - PNEUMONIA [None]
  - SINUSITIS [None]
